FAERS Safety Report 7427594-6 (Version None)
Quarter: 2011Q2

REPORT INFORMATION
  Report Type: 
  Country: None (occurrence: None)
  Receive Date: 20110420
  Receipt Date: 20110407
  Transmission Date: 20111010
  Serious: Yes (Other)
  Sender: FDA-Public Use
  Company Number: US-MYLANLABS-2011S1007497

PATIENT
  Age: 10 Year
  Sex: Female

DRUGS (3)
  1. CLONAZEPAM [Concomitant]
     Route: 065
  2. LAMOTRIGINE [Suspect]
     Dosage: 25 MG/KG/DAY
     Route: 065
  3. LAMOTRIGINE [Suspect]
     Indication: GRAND MAL CONVULSION
     Dosage: 22 MG/KG/DAY
     Route: 065

REACTIONS (2)
  - OCULOGYRIC CRISIS [None]
  - OVERDOSE [None]
